FAERS Safety Report 4355800-3 (Version None)
Quarter: 2004Q2

REPORT INFORMATION
  Report Type: 
  Country: None (occurrence: None)
  Receive Date: 20040511
  Receipt Date: 20040414
  Transmission Date: 20050107
  Serious: Yes (Hospitalization, Other)
  Sender: FDA-Public Use
  Company Number: PHNU2004DE01510

PATIENT
  Age: 63 Year
  Sex: Male
  Weight: 86 kg

DRUGS (4)
  1. GLEEVEC [Suspect]
     Indication: GASTROINTESTINAL STROMAL TUMOUR
     Dosage: 400MG/DAY
     Route: 048
     Dates: start: 20010101, end: 20040331
  2. MARCUMAR [Suspect]
     Indication: PULMONARY EMBOLISM
     Route: 048
     Dates: start: 20040210, end: 20040308
  3. NORVASC [Concomitant]
     Indication: HYPERTENSION
     Dosage: 10MG/DAY
     Route: 048
  4. CONCOR [Concomitant]
     Indication: HYPERTENSION
     Dosage: 5 MG, QD

REACTIONS (7)
  - EXTRADURAL HAEMATOMA [None]
  - METASTASES TO MENINGES [None]
  - PLATELET COUNT INCREASED [None]
  - PROTHROMBIN TIME PROLONGED [None]
  - PULMONARY EMBOLISM [None]
  - SUBDURAL HAEMATOMA [None]
  - SURGERY [None]
